FAERS Safety Report 6901948-6 (Version None)
Quarter: 2010Q3

REPORT INFORMATION
  Report Type: 
  Country: None (occurrence: None)
  Receive Date: 20100803
  Receipt Date: 20080407
  Transmission Date: 20110219
  Serious: No
  Sender: FDA-Public Use
  Company Number: US-PFIZER INC-2008030551

PATIENT
  Sex: Female
  Weight: 71.818 kg

DRUGS (4)
  1. LYRICA [Suspect]
     Indication: CERVICAL SPINAL STENOSIS
     Dates: start: 20070101
  2. LYRICA [Suspect]
     Indication: LUMBAR SPINAL STENOSIS
  3. MOBIC [Concomitant]
  4. ANALGESICS [Concomitant]

REACTIONS (2)
  - BALANCE DISORDER [None]
  - FALL [None]
